FAERS Safety Report 13851338 (Version 1)
Quarter: 2017Q3

REPORT INFORMATION
  Report Type: Spontaneous
  Country: US (occurrence: US)
  Receive Date: 20170810
  Receipt Date: 20170810
  Transmission Date: 20171127
  Serious: No
  Sender: FDA-Public Use
  Company Number: US-ELI_LILLY_AND_COMPANY-US201708003240

PATIENT
  Age: 73 Year
  Sex: Female

DRUGS (5)
  1. HUMULIN R U-500 [Suspect]
     Active Substance: INSULIN HUMAN
     Indication: TYPE 2 DIABETES MELLITUS
     Dosage: UNK, UNKNOWN
     Route: 065
  2. HUMULIN R U-500 [Suspect]
     Active Substance: INSULIN HUMAN
     Dosage: 140 U, EACH EVENING
     Route: 058
  3. HUMULIN R U-500 [Suspect]
     Active Substance: INSULIN HUMAN
     Dosage: 140 U, EACH EVENING
     Route: 058
  4. HUMULIN R U-500 [Suspect]
     Active Substance: INSULIN HUMAN
     Dosage: 190 U, EACH MORNING
     Route: 058
  5. HUMULIN R U-500 [Suspect]
     Active Substance: INSULIN HUMAN
     Dosage: 190 U, EACH MORNING
     Route: 058

REACTIONS (4)
  - Tremor [Recovered/Resolved]
  - Hyperhidrosis [Recovered/Resolved]
  - Blood glucose decreased [Recovered/Resolved]
  - Malaise [Recovered/Resolved]

NARRATIVE: CASE EVENT DATE: 20170804
